FAERS Safety Report 14919611 (Version 2)
Quarter: 2018Q2

REPORT INFORMATION
  Report Type: Spontaneous
  Country: CN (occurrence: CN)
  Receive Date: 20180521
  Receipt Date: 20180601
  Transmission Date: 20180711
  Serious: Yes (Hospitalization)
  Sender: FDA-Public Use
  Company Number: CN-BAYER-2018-094002

PATIENT
  Age: 47 Year
  Sex: Male

DRUGS (4)
  1. AVELOX [Suspect]
     Active Substance: MOXIFLOXACIN HYDROCHLORIDE
     Indication: PRODUCTIVE COUGH
  2. AVELOX [Suspect]
     Active Substance: MOXIFLOXACIN HYDROCHLORIDE
     Indication: ANTIINFLAMMATORY THERAPY
     Dosage: 400 MG, QD
     Route: 042
  3. AVELOX [Suspect]
     Active Substance: MOXIFLOXACIN HYDROCHLORIDE
     Indication: ASTHMA
  4. CEFTAZIDIME. [Concomitant]
     Active Substance: CEFTAZIDIME
     Dosage: 10 MG, QD
     Route: 042
     Dates: start: 20180212

REACTIONS (9)
  - Cough [None]
  - Productive cough [None]
  - Chronic obstructive pulmonary disease [None]
  - Sputum discoloured [None]
  - Asthma [None]
  - Chills [None]
  - Chest discomfort [None]
  - Bronchiectasis [None]
  - Pyrexia [None]

NARRATIVE: CASE EVENT DATE: 20180212
